FAERS Safety Report 18425410 (Version 1)
Quarter: 2020Q4

REPORT INFORMATION
  Report Type: Spontaneous
  Country: US (occurrence: US)
  Receive Date: 20201026
  Receipt Date: 20201026
  Transmission Date: 20210114
  Serious: No
  Sender: FDA-Public Use
  Company Number: US-AUROBINDO-AUR-APL-2020-045339

PATIENT
  Sex: Female

DRUGS (2)
  1. MOXIFLOXACIN OPHTHALMIC SOLUTION USP 0.5 % W/V [Suspect]
     Active Substance: MOXIFLOXACIN
     Dosage: 2 OR 3 DROPS, DAILY IN ONE EYE
     Route: 047
  2. MOXIFLOXACIN OPHTHALMIC SOLUTION USP 0.5 % W/V [Suspect]
     Active Substance: MOXIFLOXACIN
     Indication: PRODUCT USED FOR UNKNOWN INDICATION
     Dosage: 1 GTT DROPS, DAILY
     Route: 047

REACTIONS (9)
  - Product leakage [Unknown]
  - Eye pruritus [Unknown]
  - Eye infection [Unknown]
  - Wrong technique in product usage process [Unknown]
  - Extra dose administered [Unknown]
  - Dry eye [Unknown]
  - Eye irritation [Unknown]
  - Product container seal issue [Unknown]
  - Product dose omission issue [Unknown]

NARRATIVE: CASE EVENT DATE: 20200711
